FAERS Safety Report 5122425-1 (Version None)
Quarter: 2006Q4

REPORT INFORMATION
  Report Type: 
  Country: None (occurrence: None)
  Receive Date: 20061004
  Receipt Date: 20060920
  Transmission Date: 20070319
  Serious: Yes (Other)
  Sender: FDA-Public Use
  Company Number: 9564

PATIENT
  Age: 54 Year
  Sex: Female

DRUGS (3)
  1. SEPTOCAINE [Suspect]
     Indication: LOCAL ANAESTHESIA
     Dosage: 2.7 CC
  2. ULTRADENT TOPICAL 20% M/V BENZOCAINE [Suspect]
     Indication: LOCAL ANAESTHESIA
     Dosage: TOPICAL
     Route: 061
  3. RETRACTION CORD - RACERNIC EPINEPHRINE HYDROCHLORIDE [Suspect]
     Dosage: RETRACTION CORD

REACTIONS (3)
  - HYPOAESTHESIA [None]
  - PARAESTHESIA [None]
  - PARAESTHESIA ORAL [None]
